FAERS Safety Report 9760865 (Version 1)
Quarter: 2013Q4

REPORT INFORMATION
  Report Type: Report from Study
  Country: GB (occurrence: GB)
  Receive Date: 20131216
  Receipt Date: 20131216
  Transmission Date: 20140711
  Serious: Yes (Other)
  Sender: FDA-Public Use
  Company Number: GB-ABBVIE-13P-167-1178173-00

PATIENT
  Age: 39 Year
  Sex: Female
  Weight: 109 kg

DRUGS (4)
  1. HUMIRA [Suspect]
     Indication: PSORIASIS
     Route: 065
     Dates: start: 20080605, end: 20090113
  2. CICLOSPORIN [Concomitant]
     Indication: PRODUCT USED FOR UNKNOWN INDICATION
     Dosage: 0
     Route: 065
     Dates: start: 20090628
  3. LOESTRON [Concomitant]
     Indication: PRODUCT USED FOR UNKNOWN INDICATION
     Dosage: 0
     Route: 065
     Dates: start: 20100715
  4. LOESTRON [Concomitant]
     Dosage: 0
     Route: 065

REACTIONS (6)
  - Complication of delivery [Recovered/Resolved]
  - Caesarean section [Recovered/Resolved]
  - Prolonged labour [Recovered/Resolved]
  - Haemorrhage [Recovered/Resolved]
  - Postpartum disorder [Recovered/Resolved]
  - Wound infection [Recovered/Resolved]
